FAERS Safety Report 18262344 (Version 1)
Quarter: 2020Q3

REPORT INFORMATION
  Report Type: Report from Study
  Country: US (occurrence: US)
  Receive Date: 20200914
  Receipt Date: 20200914
  Transmission Date: 20201103
  Serious: Yes (Death)
  Sender: FDA-Public Use
  Company Number: US-PFIZER INC-2020350932

PATIENT

DRUGS (4)
  1. METHOTREXATE SODIUM. [Suspect]
     Active Substance: METHOTREXATE SODIUM
     Dosage: UNK (15?25 MG/WEEK)/ALL PATIENTS CONTINUED TO RECEIVE A STABLE DOSE OF MTX)
  2. METHOTREXATE SODIUM. [Suspect]
     Active Substance: METHOTREXATE SODIUM
     Indication: RHEUMATOID ARTHRITIS
     Dosage: UNK ((}/= 15 MG/WEEK) FOR }/= 3 MONTHS)
  3. PLACEBO [Suspect]
     Active Substance: UNSPECIFIED INGREDIENT
     Indication: RHEUMATOID ARTHRITIS
  4. PREDNISONE. [Concomitant]
     Active Substance: PREDNISONE
     Dosage: UNK ({/= 10 MG/ DAY OF PREDNISONE OR EQUIVALENT)

REACTIONS (2)
  - Hypertensive crisis [Fatal]
  - Cerebrovascular accident [Fatal]
